APPROVED DRUG PRODUCT: VOTRIENT
Active Ingredient: PAZOPANIB HYDROCHLORIDE
Strength: EQ 400MG BASE **Federal Register determination that product was not discontinued or withdrawn for safety or effectiveness reasons**
Dosage Form/Route: TABLET;ORAL
Application: N022465 | Product #002
Applicant: NOVARTIS PHARMACEUTICALS CORP
Approved: Oct 19, 2009 | RLD: Yes | RS: No | Type: DISCN